FAERS Safety Report 9140259 (Version 1)
Quarter: 2013Q1

REPORT INFORMATION
  Report Type: Spontaneous
  Country: JP (occurrence: JP)
  Receive Date: 20130305
  Receipt Date: 20130305
  Transmission Date: 20140127
  Serious: Yes (Hospitalization, Other)
  Sender: FDA-Public Use
  Company Number: PHHY2013JP020761

PATIENT
  Age: 62 Year
  Sex: Male

DRUGS (5)
  1. SANDIMMUNE NEORAL [Suspect]
     Indication: HEART TRANSPLANT REJECTION
     Dosage: 250 MG, DAILY IN TWO DIVIDED DOSES
     Route: 048
  2. SANDIMMUNE NEORAL [Interacting]
     Dosage: 200 MG, DAILY, 2 DIVIDED DOSES
     Route: 048
  3. UNSPECIFIED SUSPECT DRUGS [Interacting]
  4. IMURAN [Concomitant]
     Indication: HEART TRANSPLANT REJECTION
     Route: 048
  5. PREDONINE [Concomitant]
     Indication: HEART TRANSPLANT REJECTION
     Dosage: 5 MG
     Route: 048

REACTIONS (3)
  - Pancreatitis [Unknown]
  - Drug interaction [Unknown]
  - Immunosuppressant drug level increased [Unknown]
